FAERS Safety Report 6300874-3 (Version None)
Quarter: 2009Q3

REPORT INFORMATION
  Report Type: 
  Country: None (occurrence: None)
  Receive Date: 20090807
  Receipt Date: 20090731
  Transmission Date: 20100115
  Serious: Yes (Other)
  Sender: FDA-Public Use
  Company Number: DE-PFIZER INC-2009232453

PATIENT

DRUGS (1)
  1. LYRICA [Suspect]
     Indication: CENTRAL PAIN SYNDROME
     Dosage: UNK
     Route: 048

REACTIONS (3)
  - HYPERCALCAEMIA [None]
  - HYPERSOMNIA [None]
  - PARATHYROID TUMOUR BENIGN [None]
